FAERS Safety Report 12299774 (Version 1)
Quarter: 2016Q2

REPORT INFORMATION
  Report Type: Other
  Country: DE (occurrence: DE)
  Receive Date: 20160425
  Receipt Date: 20160425
  Transmission Date: 20160815
  Serious: Yes (Other)
  Sender: FDA-Public Use
  Company Number: DE-LUPIN PHARMACEUTICALS INC.-E2B_00005283

PATIENT
  Age: 74 Year
  Sex: Male

DRUGS (12)
  1. FOSTER [Suspect]
     Active Substance: BECLOMETHASONE\FORMOTEROL
     Dosage: DOSE INCREASED
     Route: 065
     Dates: start: 2015
  2. MONTELUKAST-HORMOSAN 10 MG FILMTABLETTEN [Suspect]
     Active Substance: MONTELUKAST SODIUM
     Indication: PRODUCT USED FOR UNKNOWN INDICATION
     Route: 065
     Dates: start: 2012
  3. VITAMIN B12 [Concomitant]
     Active Substance: CYANOCOBALAMIN
     Indication: PRODUCT USED FOR UNKNOWN INDICATION
     Dosage: DAILY DOSE: 2 DF DOSAGE FORM EVERY MONTH
     Route: 065
  4. RAMIPRIL. [Suspect]
     Active Substance: RAMIPRIL
     Indication: HYPERTENSION
     Route: 065
     Dates: start: 2014
  5. FOSTER [Suspect]
     Active Substance: BECLOMETHASONE\FORMOTEROL
     Indication: PRODUCT USED FOR UNKNOWN INDICATION
     Route: 065
     Dates: start: 2011, end: 2015
  6. ASS 100 [Concomitant]
     Active Substance: ASPIRIN
     Indication: PRODUCT USED FOR UNKNOWN INDICATION
     Route: 065
  7. PROSTAGUTT FORTE [Concomitant]
     Active Substance: HERBALS
     Indication: PRODUCT USED FOR UNKNOWN INDICATION
     Route: 065
  8. ZINKOROT 25 [Concomitant]
     Active Substance: ZINC OROTATE
     Indication: PRODUCT USED FOR UNKNOWN INDICATION
     Route: 065
  9. DEKRISTOL 20000 [Suspect]
     Active Substance: CHOLECALCIFEROL
     Indication: PRODUCT USED FOR UNKNOWN INDICATION
     Dosage: 2-3X PER MONTH
     Route: 065
  10. RED YEAST [Concomitant]
     Active Substance: YEAST
     Indication: PRODUCT USED FOR UNKNOWN INDICATION
     Route: 065
  11. RAMIPRIL. [Suspect]
     Active Substance: RAMIPRIL
     Route: 065
     Dates: start: 201511
  12. SELEN LOGES [Concomitant]
     Indication: PRODUCT USED FOR UNKNOWN INDICATION
     Route: 065

REACTIONS (21)
  - Agitation [Unknown]
  - Feeling cold [Recovered/Resolved]
  - Paraesthesia [Unknown]
  - Thirst [Unknown]
  - Exercise tolerance decreased [Unknown]
  - Weight bearing difficulty [Unknown]
  - Fatigue [Unknown]
  - Nasopharyngitis [Unknown]
  - Confusional state [Unknown]
  - Arthropathy [Unknown]
  - Hypoaesthesia [Unknown]
  - Amnesia [Unknown]
  - Abdominal distension [Unknown]
  - Abdominal pain [Unknown]
  - Premature ageing [Unknown]
  - Chills [Unknown]
  - Urine analysis abnormal [Unknown]
  - Nervousness [Unknown]
  - Dyspnoea [Unknown]
  - Sleep disorder [Unknown]
  - Incontinence [Unknown]

NARRATIVE: CASE EVENT DATE: 2015
